FAERS Safety Report 21813129 (Version 1)
Quarter: 2023Q1

REPORT INFORMATION
  Report Type: Spontaneous
  Country: US (occurrence: US)
  Receive Date: 20230103
  Receipt Date: 20230103
  Transmission Date: 20230418
  Serious: No
  Sender: FDA-Public Use
  Company Number: US-PFIZER INC-2018141145

PATIENT
  Age: 73 Year
  Sex: Male
  Weight: 64.41 kg

DRUGS (2)
  1. NICOTROL [Suspect]
     Active Substance: NICOTINE
     Indication: Nicotine dependence
     Dosage: 1 SPRAY, EVERY HOUR, AS NEEDED (PRN)
     Route: 045
  2. VIAGRA [Concomitant]
     Active Substance: SILDENAFIL CITRATE
     Dosage: UNK

REACTIONS (2)
  - Illness [Unknown]
  - Product dispensing error [Unknown]
